FAERS Safety Report 4893740-1 (Version None)
Quarter: 2006Q1

REPORT INFORMATION
  Report Type: 
  Country: None (occurrence: None)
  Receive Date: 20060127
  Receipt Date: 20060120
  Transmission Date: 20060701
  Serious: Yes (Hospitalization)
  Sender: FDA-Public Use
  Company Number: 2006JP000121

PATIENT
  Age: 52 Year
  Sex: Male

DRUGS (9)
  1. CEFAZOLIN [Suspect]
     Indication: DRUG USE FOR UNKNOWN INDICATION
     Route: 042
     Dates: start: 20050623, end: 20050623
  2. MIDAZOLAM HCL [Suspect]
     Indication: DRUG USE FOR UNKNOWN INDICATION
     Route: 065
     Dates: start: 20050623, end: 20050623
  3. PARACETAMOL [Suspect]
     Indication: NERVE BLOCK
     Dates: start: 20050623
  4. DIPRIVAN [Suspect]
     Indication: DRUG USE FOR UNKNOWN INDICATION
     Route: 042
     Dates: start: 20050623, end: 20050623
  5. DROLEPTAN [Suspect]
     Indication: DRUG USE FOR UNKNOWN INDICATION
     Route: 065
     Dates: start: 20050623, end: 20050623
  6. TRASYLOL [Suspect]
     Indication: DRUG USE FOR UNKNOWN INDICATION
     Route: 042
     Dates: start: 20050623, end: 20050623
  7. SUFENTANIL CITRATE [Suspect]
     Indication: DRUG USE FOR UNKNOWN INDICATION
     Route: 042
     Dates: start: 20050623
  8. MARCAINE [Suspect]
     Indication: DRUG USE FOR UNKNOWN INDICATION
     Dates: start: 20050623
  9. CATAPRESAN [Suspect]
     Indication: NERVE BLOCK
     Dates: start: 20050623

REACTIONS (2)
  - OEDEMA [None]
  - URTICARIA [None]
